FAERS Safety Report 9617344 (Version 5)
Quarter: 2016Q3

REPORT INFORMATION
  Report Type: Report from Study
  Country: FR (occurrence: FR)
  Receive Date: 20131011
  Receipt Date: 20160811
  Transmission Date: 20161109
  Serious: Yes (Other)
  Sender: FDA-Public Use
  Company Number: FR-ROCHE-1287894

PATIENT
  Age: 50 Year
  Sex: Male

DRUGS (6)
  1. PEG-INTERFERON ALFA 2A [Suspect]
     Active Substance: PEGINTERFERON ALFA-2A
     Indication: HEPATITIS C
     Route: 065
  2. RIBAVIRIN. [Suspect]
     Active Substance: RIBAVIRIN
     Indication: HEPATITIS C
     Route: 065
  3. CICLOSPORINE [Concomitant]
     Active Substance: CYCLOSPORINE
  4. BOCEPREVIR [Suspect]
     Active Substance: BOCEPREVIR
     Indication: HEPATITIS C
     Route: 065
  5. RALTEGRAVIR. [Concomitant]
     Active Substance: RALTEGRAVIR
     Route: 065
  6. LAMIVUDINE. [Concomitant]
     Active Substance: LAMIVUDINE
     Route: 065

REACTIONS (2)
  - Neutropenia [Unknown]
  - Anaemia [Unknown]
